FAERS Safety Report 13273317 (Version 1)
Quarter: 2017Q1

REPORT INFORMATION
  Report Type: Spontaneous
  Country: US (occurrence: US)
  Receive Date: 20170227
  Receipt Date: 20170227
  Transmission Date: 20170428
  Serious: No
  Sender: FDA-Public Use
  Company Number: US-BAYER-2017-033572

PATIENT
  Sex: Male

DRUGS (1)
  1. BETASERON [Suspect]
     Active Substance: INTERFERON BETA-1B
     Indication: MULTIPLE SCLEROSIS
     Dosage: 1 ML, UNK
     Dates: start: 199903

REACTIONS (6)
  - Head discomfort [None]
  - Injection site reaction [None]
  - Fatigue [None]
  - White blood cell count decreased [None]
  - Rash [Recovered/Resolved]
  - Platelet count decreased [None]

NARRATIVE: CASE EVENT DATE: 2014
